FAERS Safety Report 7207821-0 (Version None)
Quarter: 2011Q1

REPORT INFORMATION
  Report Type: 
  Country: None (occurrence: None)
  Receive Date: 20110104
  Receipt Date: 20101227
  Transmission Date: 20110831
  Serious: Yes (Hospitalization)
  Sender: FDA-Public Use
  Company Number: US-BIOGENIDEC-2009BI041892

PATIENT
  Age: 58 Year
  Sex: Female
  Weight: 72 kg

DRUGS (3)
  1. AVONEX [Suspect]
     Route: 030
     Dates: start: 19990101
  2. AVONEX [Suspect]
     Indication: MULTIPLE SCLEROSIS
     Route: 030
     Dates: start: 20000103
  3. AVONEX [Suspect]
     Route: 030
     Dates: start: 20070122

REACTIONS (4)
  - FALL [None]
  - GAIT DISTURBANCE [None]
  - ANKLE FRACTURE [None]
  - NERVOUS SYSTEM DISORDER [None]
